FAERS Safety Report 15180383 (Version 5)
Quarter: 2018Q3

REPORT INFORMATION
  Report Type: Spontaneous
  Country: US (occurrence: US)
  Receive Date: 20180723
  Receipt Date: 20180921
  Transmission Date: 20181010
  Serious: Yes (Other)
  Sender: FDA-Public Use
  Company Number: US-AMGEN-USASP2018098692

PATIENT
  Age: 56 Year
  Sex: Female
  Weight: 87.53 kg

DRUGS (2)
  1. METHOTREXATE. [Suspect]
     Active Substance: METHOTREXATE
     Indication: RHEUMATOID ARTHRITIS
     Dosage: DOSE GREATER THAN OR EQUAL TO 20 MG, QWK
     Route: 065
  2. ENBREL [Suspect]
     Active Substance: ETANERCEPT
     Indication: RHEUMATOID ARTHRITIS
     Dosage: 50 MG, QWK
     Route: 058
     Dates: start: 2013, end: 20160412

REACTIONS (5)
  - Dental operation [Unknown]
  - Drug ineffective [Unknown]
  - Pain [Unknown]
  - Arthropathy [Unknown]
  - Skin reaction [Unknown]

NARRATIVE: CASE EVENT DATE: 201604
